FAERS Safety Report 7301956-X (Version None)
Quarter: 2011Q1

REPORT INFORMATION
  Report Type: 
  Country: None (occurrence: None)
  Receive Date: 20110218
  Receipt Date: 20110209
  Transmission Date: 20110831
  Serious: Yes (Other)
  Sender: FDA-Public Use
  Company Number: JP-ROCHE-760041

PATIENT
  Age: 41 Year
  Sex: Female

DRUGS (4)
  1. CELLCEPT [Suspect]
     Indication: PROPHYLAXIS AGAINST TRANSPLANT REJECTION
     Dosage: NOTE: DOSAGE IS UNCERTAIN.
     Route: 048
  2. METHYLPREDNISOLONE [Concomitant]
     Dosage: NOTE: DOSAGE IS UNCERTAIN.
  3. TACROLIMUS [Concomitant]
     Dosage: NOTE: DOSAGE IS UNCERTAIN
  4. BASILIXIMAB [Concomitant]
     Dosage: DRUG:(GENETICAL RECOMBINATION)(BASILIXIMAB(GENETICAL RECOMBINATION)) NOTE: DOSAGE IS UNCERTAIN
     Route: 041

REACTIONS (1)
  - GASTROINTESTINAL STROMAL TUMOUR [None]
